FAERS Safety Report 8608888 (Version 4)
Quarter: 2013Q1

REPORT INFORMATION
  Report Type: Spontaneous
  Country: US (occurrence: US)
  Receive Date: 20120611
  Receipt Date: 20130325
  Transmission Date: 20140127
  Serious: Yes (Other)
  Sender: FDA-Public Use
  Company Number: US-PFIZER INC-2012137577

PATIENT
  Age: 47 Year
  Sex: Male

DRUGS (2)
  1. GEODON [Suspect]
     Dosage: UNK
  2. GEODON [Suspect]
     Dosage: 120 MG, 2X/DAY

REACTIONS (2)
  - Psychotic disorder [Unknown]
  - Paranoia [Unknown]
